FAERS Safety Report 9206411 (Version 1)
Quarter: 2013Q2

REPORT INFORMATION
  Report Type: Spontaneous
  Country: IT (occurrence: None)
  Receive Date: 20130401
  Receipt Date: 20130401
  Transmission Date: 20140414
  Serious: Yes (Hospitalization)
  Sender: FDA-Public Use
  Company Number: FK201300472

PATIENT
  Age: 84 Year
  Sex: Female
  Weight: 50 kg

DRUGS (2)
  1. OXALIPLATIN [Suspect]
     Indication: NON-HODGKIN^S LYMPHOMA
     Dosage: 70 MG/M2, CYCLICAL, IV, NOT OTHERWISE SPECIFIED
     Route: 042
     Dates: start: 20130118, end: 20130119
  2. GEMCITABINE [Suspect]
     Indication: NON-HODGKIN^S LYMPHOMA
     Dosage: 700 MG/M2, CYCLICAL, IV, NOT OTHERWISE SPECIFIED
     Route: 042
     Dates: start: 20130118, end: 20130119

REACTIONS (3)
  - Bradykinesia [None]
  - Disorientation [None]
  - Bradyphrenia [None]
